FAERS Safety Report 9184998 (Version 3)
Quarter: 2013Q2

REPORT INFORMATION
  Report Type: Spontaneous
  Country: US (occurrence: US)
  Receive Date: 20130325
  Receipt Date: 20130619
  Transmission Date: 20140414
  Serious: Yes (Other)
  Sender: FDA-Public Use
  Company Number: US-ELI_LILLY_AND_COMPANY-US201303004443

PATIENT
  Sex: Female

DRUGS (4)
  1. CYMBALTA [Suspect]
     Indication: DEPRESSION
     Dosage: 90 MG, UNKNOWN
  2. CYMBALTA [Suspect]
     Dosage: 60 MG, UNKNOWN
  3. CYMBALTA [Suspect]
     Dosage: 30 MG, UNKNOWN
  4. CYMBALTA [Suspect]
     Dosage: 60 MG, UNKNOWN

REACTIONS (7)
  - Suicidal ideation [Recovered/Resolved]
  - Asthenia [Recovered/Resolved]
  - Hot flush [Recovered/Resolved]
  - Depression [Recovered/Resolved]
  - Impatience [Recovered/Resolved]
  - Drug withdrawal syndrome [Recovered/Resolved]
  - Expired drug administered [Unknown]
